FAERS Safety Report 5932581-0 (Version None)
Quarter: 2008Q4

REPORT INFORMATION
  Report Type: 
  Country: None (occurrence: None)
  Receive Date: 20081009
  Receipt Date: 20071206
  Transmission Date: 20090506
  Serious: Yes (Other)
  Sender: FDA-Public Use
  Company Number: PHEH2007US14046

PATIENT
  Age: 70 Year
  Sex: Female
  Weight: 43.1 kg

DRUGS (5)
  1. ZOMETA [Suspect]
     Indication: METASTASES TO BONE
     Dosage: 4 MG MONTHLY, INFUSION
     Dates: start: 20040802, end: 20070102
  2. AREDIA [Suspect]
     Indication: METASTASES TO BONE
     Dosage: 30 MG
     Dates: start: 20070508, end: 20070830
  3. DECADRON [Concomitant]
  4. XELODA [Concomitant]
  5. FASLODEX [Concomitant]

REACTIONS (9)
  - ACTINOMYCOSIS [None]
  - BONE DISORDER [None]
  - DEBRIDEMENT [None]
  - MUCOSAL INFLAMMATION [None]
  - ORAL DISORDER [None]
  - OSTEONECROSIS [None]
  - PRIMARY SEQUESTRUM [None]
  - RESORPTION BONE INCREASED [None]
  - TOOTH DISORDER [None]
